FAERS Safety Report 9153862 (Version 2)
Quarter: 2013Q1

REPORT INFORMATION
  Report Type: Spontaneous
  Country: US (occurrence: None)
  Receive Date: 20130308
  Receipt Date: 20130308
  Transmission Date: 20140127
  Serious: Yes (Other)
  Sender: FDA-Public Use
  Company Number: None

PATIENT
  Sex: Male

DRUGS (1)
  1. REBIF [Suspect]
     Indication: MULTIPLE SCLEROSIS
     Dosage: 44 MCG 3 TIMES PER WEEK SQ
     Route: 058
     Dates: start: 20130129

REACTIONS (3)
  - Asthenia [None]
  - Gait disturbance [None]
  - Muscular weakness [None]
